FAERS Safety Report 9792864 (Version 1)
Quarter: 2014Q1

REPORT INFORMATION
  Report Type: Spontaneous
  Country: US (occurrence: US)
  Receive Date: 20140102
  Receipt Date: 20140102
  Transmission Date: 20141002
  Serious: Yes (Other)
  Sender: FDA-Public Use
  Company Number: US-JNJFOC-20131216697

PATIENT
  Sex: Male

DRUGS (15)
  1. ZYTIGA [Suspect]
     Indication: PROSTATE CANCER
     Dosage: 250MG FOUR TIMES DAILY
     Route: 048
  2. NIASPAN [Concomitant]
     Route: 065
  3. LASIX [Concomitant]
     Route: 065
  4. PREDNISONE [Concomitant]
     Route: 065
  5. ALLOPURINOL [Concomitant]
     Route: 065
  6. ARANESP [Concomitant]
     Route: 058
  7. ASPIRIN [Concomitant]
     Route: 065
  8. ATIVAN [Concomitant]
     Route: 065
  9. AVELOX [Concomitant]
     Route: 065
  10. FENOFIBRATE [Concomitant]
     Route: 065
  11. FERROUS SULFATE [Concomitant]
     Route: 065
  12. FOLIC ACID [Concomitant]
     Route: 065
  13. GALANTAMINE [Concomitant]
     Route: 065
  14. TAMSULOSIN [Concomitant]
     Route: 065
  15. XGEVA [Concomitant]
     Route: 065

REACTIONS (1)
  - Intraocular pressure increased [Unknown]
